FAERS Safety Report 7217412-3 (Version None)
Quarter: 2011Q1

REPORT INFORMATION
  Report Type: 
  Country: None (occurrence: None)
  Receive Date: 20110110
  Receipt Date: 20110103
  Transmission Date: 20110831
  Serious: Yes (Hospitalization)
  Sender: FDA-Public Use
  Company Number: FR-SANOFI-AVENTIS-2011SA000829

PATIENT
  Age: 79 Year
  Sex: Female

DRUGS (6)
  1. KARDEGIC [Concomitant]
     Indication: CARDIOVASCULAR EVENT PROPHYLAXIS
     Route: 048
  2. TRIATEC [Concomitant]
     Indication: CARDIOVASCULAR EVENT PROPHYLAXIS
     Route: 048
  3. STILNOX [Suspect]
     Route: 048
     Dates: start: 20101006, end: 20101006
  4. CORDARONE [Concomitant]
     Route: 048
  5. DOLIPRANE [Concomitant]
     Route: 048
  6. SERETIDE [Concomitant]
     Route: 055

REACTIONS (2)
  - FEMORAL NECK FRACTURE [None]
  - FALL [None]
